FAERS Safety Report 14381588 (Version 3)
Quarter: 2018Q2

REPORT INFORMATION
  Report Type: Spontaneous
  Country: DE (occurrence: DE)
  Receive Date: 20180112
  Receipt Date: 20180530
  Transmission Date: 20180711
  Serious: Yes (Death, Hospitalization, Congenital Anomaly, Other)
  Sender: FDA-Public Use
  Company Number: DE-MYLANLABS-2018M1002635

PATIENT
  Age: 52 Year
  Sex: Female
  Weight: 66 kg

DRUGS (35)
  1. FLUOROURACIL. [Suspect]
     Active Substance: FLUOROURACIL
     Dosage: 625 MG, Q2W
     Route: 040
  2. FOLINIC ACID [Suspect]
     Active Substance: LEUCOVORIN
     Dosage: 335 MG, Q2W
     Route: 042
     Dates: start: 20150428, end: 20150526
  3. OXALIPLATIN. [Suspect]
     Active Substance: OXALIPLATIN
     Dosage: UNK
     Route: 042
     Dates: start: 20150428, end: 20150609
  4. GRANOCYTE [Concomitant]
     Active Substance: LENOGRASTIM
     Indication: NEUTROPENIA
     Dosage: 34 MILLION IU, QD
     Route: 058
     Dates: start: 20150615, end: 20150810
  5. IRINOTECAN [Suspect]
     Active Substance: IRINOTECAN
     Dosage: 220 MG, Q2W
     Route: 042
     Dates: start: 20150626, end: 20150626
  6. FOLINIC ACID [Suspect]
     Active Substance: LEUCOVORIN
     Indication: COLORECTAL CANCER
     Dosage: 600 MG, Q2W
     Route: 042
     Dates: start: 20151126, end: 20151126
  7. FOLINIC ACID [Suspect]
     Active Substance: LEUCOVORIN
     Dosage: UNK, DOSAGES BETWEEN 255 MG AND 645 MG
     Route: 042
     Dates: end: 20160630
  8. FOLINIC ACID [Suspect]
     Active Substance: LEUCOVORIN
     Dosage: 265 MG, Q2W
     Route: 042
     Dates: start: 20150626, end: 20150730
  9. IRINOTECAN [Suspect]
     Active Substance: IRINOTECAN
     Dosage: 1 DF, Q2W
     Route: 042
     Dates: end: 20150630
  10. IRINOTECAN [Suspect]
     Active Substance: IRINOTECAN
     Dosage: 222 MG, Q2W
     Route: 042
     Dates: start: 20150713, end: 20150730
  11. FLUOROURACIL. [Suspect]
     Active Substance: FLUOROURACIL
     Indication: COLORECTAL CANCER
     Dosage: 600 MG, Q2W
     Route: 040
     Dates: start: 20151126, end: 20151126
  12. AVASTIN [Suspect]
     Active Substance: BEVACIZUMAB
     Dosage: 230 MG, Q2W
     Route: 042
     Dates: start: 20160908
  13. CLEXANE [Concomitant]
     Active Substance: ENOXAPARIN SODIUM
     Indication: THROMBOSIS PROPHYLAXIS
     Route: 058
     Dates: start: 20150427
  14. CLEXANE [Concomitant]
     Active Substance: ENOXAPARIN SODIUM
     Dosage: UNK
  15. IRINOTECAN [Suspect]
     Active Substance: IRINOTECAN
     Dosage: 275 MG, Q2W
     Route: 042
     Dates: start: 20150428, end: 20150526
  16. FLUOROURACIL. [Suspect]
     Active Substance: FLUOROURACIL
     Dosage: 600 MG, Q2W
     Route: 040
  17. FOLINIC ACID [Suspect]
     Active Substance: LEUCOVORIN
     Dosage: 255 MG, Q2W
     Route: 042
     Dates: start: 20150813, end: 20151008
  18. FOLINIC ACID [Suspect]
     Active Substance: LEUCOVORIN
     Dosage: 330 MG, Q2W
     Route: 042
     Dates: start: 20150608, end: 20150608
  19. FOLINIC ACID [Suspect]
     Active Substance: LEUCOVORIN
     Dosage: 635 MG, Q2W
     Route: 042
     Dates: start: 20151210, end: 20160121
  20. IRINOTECAN [Suspect]
     Active Substance: IRINOTECAN
     Indication: PRODUCT USED FOR UNKNOWN INDICATION
     Dosage: 215 MG, Q2W
     Route: 042
     Dates: start: 20160908, end: 20160908
  21. IRINOTECAN [Suspect]
     Active Substance: IRINOTECAN
     Dosage: UNK
  22. AVASTIN [Suspect]
     Active Substance: BEVACIZUMAB
     Dosage: 230 MG, Q2W
     Route: 042
     Dates: start: 20160630
  23. OXALIPLATIN. [Suspect]
     Active Substance: OXALIPLATIN
     Dosage: 110 MG, Q2W
     Route: 042
     Dates: start: 20150814, end: 20150925
  24. FLUOROURACIL. [Suspect]
     Active Substance: FLUOROURACIL
     Dosage: 625 MG, Q2W
     Route: 040
     Dates: start: 20160428, end: 20160428
  25. FLUOROURACIL. [Suspect]
     Active Substance: FLUOROURACIL
     Dosage: 3550 MG, Q2W
     Route: 042
  26. AVASTIN [Suspect]
     Active Substance: BEVACIZUMAB
     Dosage: 330 MG, UNK
     Route: 042
  27. AVASTIN [Suspect]
     Active Substance: BEVACIZUMAB
     Dosage: 230 MG, UNK
     Route: 042
  28. FOLINIC ACID [Suspect]
     Active Substance: LEUCOVORIN
     Dosage: 590 MG, Q2W
     Route: 042
     Dates: start: 20160908, end: 20160908
  29. OXALIPLATIN. [Suspect]
     Active Substance: OXALIPLATIN
     Indication: COLORECTAL CANCER
     Dosage: 115 MG, Q2W
     Route: 042
     Dates: start: 20150627, end: 20150731
  30. IRINOTECAN [Suspect]
     Active Substance: IRINOTECAN
     Dosage: 270 MG, Q2W
     Route: 042
     Dates: start: 20150608, end: 20150608
  31. IRINOTECAN [Suspect]
     Active Substance: IRINOTECAN
     Dosage: 210 MG, Q2W
     Route: 042
     Dates: start: 20150813, end: 20151008
  32. FLUOROURACIL. [Suspect]
     Active Substance: FLUOROURACIL
     Indication: COLORECTAL CANCER
     Dosage: 3550 MG, Q2W
     Route: 042
     Dates: start: 20160908, end: 20160909
  33. FLUOROURACIL. [Suspect]
     Active Substance: FLUOROURACIL
     Dosage: 5345 MG, Q2W
     Route: 042
     Dates: start: 20150428, end: 20150430
  34. AVASTIN [Suspect]
     Active Substance: BEVACIZUMAB
     Indication: COLORECTAL CANCER
     Dosage: 330 MG, Q2W
     Route: 042
     Dates: start: 20150428
  35. AVASTIN [Suspect]
     Active Substance: BEVACIZUMAB
     Dosage: 280 MG, Q2W
     Route: 042
     Dates: start: 20160107

REACTIONS (10)
  - Metastases to central nervous system [Fatal]
  - Bladder tamponade [Unknown]
  - Inappropriate schedule of drug administration [Unknown]
  - Cystitis radiation [Recovering/Resolving]
  - Metastases to meninges [Unknown]
  - Mucosal inflammation [Recovered/Resolved]
  - Vomiting [Recovered/Resolved]
  - Cystitis haemorrhagic [Recovering/Resolving]
  - Off label use [Unknown]
  - Proteinuria [Recovered/Resolved]

NARRATIVE: CASE EVENT DATE: 20160107
